FAERS Safety Report 6937556-0 (Version None)
Quarter: 2010Q3

REPORT INFORMATION
  Report Type: 
  Country: None (occurrence: None)
  Receive Date: 20100823
  Receipt Date: 20100823
  Transmission Date: 20110219
  Serious: Yes (Other)
  Sender: FDA-Public Use
  Company Number: None

PATIENT
  Age: 52 Year
  Sex: Female

DRUGS (1)
  1. KENALOG [Suspect]
     Indication: INTERVERTEBRAL DISC PROTRUSION
     Dates: start: 20100529, end: 20100529

REACTIONS (4)
  - HYPERHIDROSIS [None]
  - INSOMNIA [None]
  - NIGHT SWEATS [None]
  - SLEEP APNOEA SYNDROME [None]
